FAERS Safety Report 21811766 (Version 2)
Quarter: 2023Q1

REPORT INFORMATION
  Report Type: Spontaneous
  Country: US (occurrence: US)
  Receive Date: 20230103
  Receipt Date: 20230308
  Transmission Date: 20230418
  Serious: Yes (Other)
  Sender: FDA-Public Use
  Company Number: US-PFIZER INC-202200542130

PATIENT
  Age: 71 Year
  Sex: Female
  Weight: 53.98 kg

DRUGS (6)
  1. BOSULIF [Suspect]
     Active Substance: BOSUTINIB MONOHYDRATE
     Indication: Chronic myeloid leukaemia
     Dosage: UNK
     Dates: start: 2022
  2. BOSULIF [Suspect]
     Active Substance: BOSUTINIB MONOHYDRATE
     Indication: Platelet disorder
     Dosage: 100 MG, AS NEEDED (100 MG, TABLET 1-2 TAB DAILY PRN)
     Route: 048
  3. BOSULIF [Suspect]
     Active Substance: BOSUTINIB MONOHYDRATE
     Dosage: 100MG ALT 200MG - DOSE CHANGE
  4. BOSULIF [Suspect]
     Active Substance: BOSUTINIB MONOHYDRATE
     Dosage: 100 MG (ONE PILL ONE DAY, AND TWO PILLS THE NEXT DAY, THEN ONE PILL AGAIN)
  5. BOSULIF [Suspect]
     Active Substance: BOSUTINIB MONOHYDRATE
     Dosage: 200 MG, DAILY (TAKE TWO PILLS BY MOUTH DAILY)
     Route: 048
  6. BOSULIF [Suspect]
     Active Substance: BOSUTINIB MONOHYDRATE
     Dosage: 100 MG, 2X/DAY
     Route: 048
     Dates: start: 2022

REACTIONS (4)
  - Platelet count decreased [Unknown]
  - Off label use [Unknown]
  - Intentional product misuse [Unknown]
  - Bone marrow myelogram abnormal [Unknown]

NARRATIVE: CASE EVENT DATE: 20220101
